FAERS Safety Report 25089178 (Version 1)
Quarter: 2025Q1

REPORT INFORMATION
  Report Type: Spontaneous
  Country: CA (occurrence: CA)
  Receive Date: 20250318
  Receipt Date: 20250318
  Transmission Date: 20250408
  Serious: No
  Sender: PFIZER
  Company Number: CA-PFIZER INC-202500053440

PATIENT
  Age: 40 Year
  Sex: Female

DRUGS (1)
  1. ABRILADA [Suspect]
     Active Substance: ADALIMUMAB-AFZB
     Indication: Crohn^s disease
     Route: 058
     Dates: start: 20230619

REACTIONS (5)
  - Condition aggravated [Unknown]
  - Incorrect dose administered [Unknown]
  - Device malfunction [Unknown]
  - Device mechanical issue [Unknown]
  - Product leakage [Unknown]
